FAERS Safety Report 20047689 (Version 1)
Quarter: 2021Q4

REPORT INFORMATION
  Report Type: Spontaneous
  Country: US (occurrence: US)
  Receive Date: 20211109
  Receipt Date: 20211109
  Transmission Date: 20220304
  Serious: Yes (Hospitalization, Other)
  Sender: FDA-Public Use
  Company Number: US-CPL-00622

PATIENT
  Age: 72 Year
  Sex: Female
  Weight: 93 kg

DRUGS (12)
  1. ROSUVASTATIN [Interacting]
     Active Substance: ROSUVASTATIN
     Indication: Hyperlipidaemia
     Dosage: EVERY NIGHT AT BEDTIME
     Route: 048
  2. TICAGRELOR [Interacting]
     Active Substance: TICAGRELOR
     Dosage: P.O. TWICE DAILY
     Route: 048
  3. ASPIRIN [Concomitant]
     Active Substance: ASPIRIN
     Dosage: P.O. ONCE DAILY
     Route: 048
  4. ESTRADIOL [Concomitant]
     Active Substance: ESTRADIOL
     Dosage: P.O. ONCE DAILY
     Route: 048
  5. LORAZEPAM [Concomitant]
     Active Substance: LORAZEPAM
     Dosage: P.O. THREE TIMES DAILY
     Route: 048
  6. HYDROXYZINE [Concomitant]
     Active Substance: HYDROXYZINE HYDROCHLORIDE
     Dosage: P.O. EVERY 8 HOURS AS NEEDED
     Route: 048
  7. MELATONIN [Concomitant]
     Active Substance: MELATONIN
     Dosage: P.O. ONCE NIGHTLY
     Route: 048
  8. METFORMIN [Concomitant]
     Active Substance: METFORMIN HYDROCHLORIDE
     Dosage: P.O. TWICE DAILY (ON DISCHARGED METFORMIN 1,000 MG P.O. TWICE DAILY )
     Route: 048
  9. METOPROLOL TARTRATE [Concomitant]
     Active Substance: METOPROLOL TARTRATE
     Dosage: P.O. TWICE DAILY  (REDUCED TO 50 MG P.O. TWICE DAILY)
     Route: 048
  10. NAPROXEN [Concomitant]
     Active Substance: NAPROXEN
     Dosage: P.O. TWICE DAILY AS NEEDED
     Route: 048
  11. OMEPRAZOLE [Concomitant]
     Active Substance: OMEPRAZOLE
     Dosage: P.O. DAILY
     Route: 048
  12. LEVOTHYROXINE [Concomitant]
     Active Substance: LEVOTHYROXINE
     Dosage: P.O. DAILY (REDUCED TO 75 MCG P.O. ONCE DAILY)
     Route: 048

REACTIONS (4)
  - Acute kidney injury [Recovering/Resolving]
  - Rhabdomyolysis [Recovering/Resolving]
  - Metabolic acidosis [Unknown]
  - Drug interaction [Unknown]
